FAERS Safety Report 11916067 (Version 3)
Quarter: 2016Q1

REPORT INFORMATION
  Report Type: Report from Study
  Country: US (occurrence: US)
  Receive Date: 20160114
  Receipt Date: 20160129
  Transmission Date: 20160526
  Serious: Yes (Hospitalization, Other)
  Sender: FDA-Public Use
  Company Number: US-BAYER-2015-487834

PATIENT
  Age: 70 Year
  Sex: Female

DRUGS (2)
  1. STIVARGA [Suspect]
     Active Substance: REGORAFENIB
     Indication: COLON CANCER
     Dosage: 40 MG, 4 TABLETS, DAILY
     Route: 048
     Dates: start: 20151130, end: 20151217
  2. STIVARGA [Suspect]
     Active Substance: REGORAFENIB
     Indication: COLON CANCER
     Dosage: 40 MG, 4 TABLETS, DAILY
     Route: 048
     Dates: end: 20160114

REACTIONS (15)
  - Lip dry [Not Recovered/Not Resolved]
  - Confusional state [Recovered/Resolved]
  - Systolic hypertension [Not Recovered/Not Resolved]
  - Skin discolouration [None]
  - No therapeutic response [None]
  - Asthenia [None]
  - Dry mouth [Not Recovered/Not Resolved]
  - Neuralgia [None]
  - Dysphonia [Not Recovered/Not Resolved]
  - Peripheral swelling [None]
  - Hepatitis [Recovered/Resolved]
  - Platelet count decreased [None]
  - Hypophagia [Recovered/Resolved]
  - Neuropathy peripheral [Not Recovered/Not Resolved]
  - Hypertension [None]

NARRATIVE: CASE EVENT DATE: 20151201
